FAERS Safety Report 17991838 (Version 2)
Quarter: 2020Q3

REPORT INFORMATION
  Report Type: Spontaneous
  Country: CN (occurrence: CN)
  Receive Date: 20200707
  Receipt Date: 20200709
  Transmission Date: 20201103
  Serious: Yes (Life-Threatening, Hospitalization)
  Sender: FDA-Public Use
  Company Number: CN-CELGENEUS-CHN-20200700625

PATIENT
  Age: 68 Year
  Sex: Male

DRUGS (5)
  1. ABRAXANE [Suspect]
     Active Substance: PACLITAXEL
     Indication: OESOPHAGEAL CARCINOMA
     Dosage: 460 MILLIGRAM
     Route: 041
     Dates: start: 20200613, end: 20200613
  2. NEDAPLATIN [Suspect]
     Active Substance: NEDAPLATIN
     Indication: OESOPHAGEAL CARCINOMA
     Dosage: 50 MILLIGRAM
     Route: 041
     Dates: start: 20200613, end: 20200615
  3. SODIUM CHLORIDE. [Concomitant]
     Active Substance: SODIUM CHLORIDE
     Dosage: 500 MILLILITER
     Route: 041
     Dates: start: 20200615, end: 20200615
  4. SODIUM CHLORIDE. [Concomitant]
     Active Substance: SODIUM CHLORIDE
     Indication: OESOPHAGEAL CARCINOMA
     Dosage: 100 MILLILITER
     Route: 041
     Dates: start: 20200613, end: 20200613
  5. RECOMBINANT HUMAN GRANULOCYTE COLONY?STIMULATING FACTOR [Concomitant]
     Active Substance: GRANULOCYTE COLONY-STIMULATING FACTOR NOS
     Indication: WHITE BLOOD CELL COUNT INCREASED
     Route: 065
     Dates: start: 20200616

REACTIONS (1)
  - Myelosuppression [Recovering/Resolving]

NARRATIVE: CASE EVENT DATE: 20200617
